FAERS Safety Report 5326878-5 (Version None)
Quarter: 2007Q2

REPORT INFORMATION
  Report Type: 
  Country: None (occurrence: None)
  Receive Date: 20070511
  Receipt Date: 20070507
  Transmission Date: 20071010
  Serious: Yes (Death)
  Sender: FDA-Public Use
  Company Number: 009-C5013-07050361

PATIENT
  Age: 57 Year
  Sex: Male
  Weight: 86 kg

DRUGS (8)
  1. CC-5013 (LENALIDOMIDE) (CAPSULES) [Suspect]
     Indication: MYELOFIBROSIS
     Dosage: DAILY, ORAL
     Route: 048
     Dates: start: 20070418, end: 20070430
  2. AVELOX [Concomitant]
  3. NEUPOGEN [Concomitant]
  4. CODIOVAN (CO-DIOVAN) [Concomitant]
  5. PRAM [Concomitant]
  6. PANTOPRAZOLE SODIUM [Concomitant]
  7. EXJADE [Concomitant]
  8. HALCION [Concomitant]

REACTIONS (5)
  - CONDITION AGGRAVATED [None]
  - FUNGAL INFECTION [None]
  - MULTI-ORGAN FAILURE [None]
  - PNEUMONIA [None]
  - SEPTIC SHOCK [None]
